FAERS Safety Report 6920604-1 (Version None)
Quarter: 2010Q3

REPORT INFORMATION
  Report Type: 
  Country: None (occurrence: None)
  Receive Date: 20100812
  Receipt Date: 20100809
  Transmission Date: 20110219
  Serious: Yes (Hospitalization)
  Sender: FDA-Public Use
  Company Number: US-BRISTOL-MYERS SQUIBB COMPANY-15226905

PATIENT
  Age: 5 Decade
  Sex: Female

DRUGS (6)
  1. ABILIFY [Suspect]
     Indication: MAJOR DEPRESSION
     Route: 048
     Dates: start: 20100101
  2. KLONOPIN [Suspect]
     Indication: DEPRESSION
  3. PROZAC [Suspect]
     Indication: DEPRESSION
  4. SEROQUEL [Suspect]
     Indication: DEPRESSION
     Dosage: AT NIGHT
  5. RISPERDAL [Concomitant]
  6. CELEXA [Concomitant]

REACTIONS (5)
  - ARRHYTHMIA [None]
  - CHEST PAIN [None]
  - CONTUSION [None]
  - ELECTROCARDIOGRAM QT PROLONGED [None]
  - SYNCOPE [None]
